FAERS Safety Report 6978103-7 (Version None)
Quarter: 2010Q3

REPORT INFORMATION
  Report Type: 
  Country: None (occurrence: None)
  Receive Date: 20100913
  Receipt Date: 20100831
  Transmission Date: 20110219
  Serious: Yes (Hospitalization)
  Sender: FDA-Public Use
  Company Number: DE-ELI_LILLY_AND_COMPANY-DE201009000012

PATIENT
  Sex: Male

DRUGS (15)
  1. FORTEO [Suspect]
     Indication: OSTEOPOROSIS
     Dosage: UNK, UNKNOWN
     Route: 058
     Dates: start: 20100602
  2. PREDNISOLON [Concomitant]
  3. RAMIPRIL [Concomitant]
  4. NEBIVOLOL [Concomitant]
  5. TORASEMID [Concomitant]
     Dosage: UNK, WHEN NEEDED
  6. THEOPHYLLINE [Concomitant]
  7. MATRIFEN [Concomitant]
  8. BERODUAL [Concomitant]
     Route: 055
  9. VIANI [Concomitant]
  10. SPIRIVA [Concomitant]
  11. ONBREZ [Concomitant]
  12. LANTUS [Concomitant]
  13. PANTOPRAZOLE SODIUM [Concomitant]
  14. CALCIUM [Concomitant]
  15. DEKRISTOL [Concomitant]
     Dosage: UNK, ONE EVERY 3 WEEKS

REACTIONS (2)
  - CERVICAL VERTEBRAL FRACTURE [None]
  - PAIN [None]
